FAERS Safety Report 23522743 (Version 1)
Quarter: 2024Q1

REPORT INFORMATION
  Report Type: Spontaneous
  Country: US (occurrence: US)
  Receive Date: 20240214
  Receipt Date: 20240214
  Transmission Date: 20240410
  Serious: Yes (Hospitalization)
  Sender: FDA-Public Use
  Company Number: US-SK LIFE SCIENCE, INC.-SKPVG-2024-000195

PATIENT

DRUGS (4)
  1. XCOPRI [Suspect]
     Active Substance: CENOBAMATE
     Indication: Product used for unknown indication
     Dosage: UNK
     Route: 065
  2. XCOPRI [Suspect]
     Active Substance: CENOBAMATE
     Dosage: 200 MILLIGRAM, QD
     Route: 065
     Dates: start: 20230228, end: 202401
  3. DILANTIN [Suspect]
     Active Substance: PHENYTOIN
     Indication: Product used for unknown indication
     Dosage: EXTENDED RELEASE ORAL DILANTIN
     Route: 048
  4. APTIOM [Concomitant]
     Active Substance: ESLICARBAZEPINE ACETATE
     Indication: Product used for unknown indication
     Dosage: UNK
     Route: 065

REACTIONS (7)
  - Mental status changes [Not Recovered/Not Resolved]
  - Encephalopathy [Unknown]
  - Seizure [Not Recovered/Not Resolved]
  - Metabolic acidosis [Unknown]
  - Drug level below therapeutic [Unknown]
  - Product dose omission issue [Not Recovered/Not Resolved]
  - Living in residential institution [Unknown]

NARRATIVE: CASE EVENT DATE: 20240101
